FAERS Safety Report 9186251 (Version 2)
Quarter: 2013Q2

REPORT INFORMATION
  Report Type: Spontaneous
  Country: None (occurrence: US)
  Receive Date: 20130325
  Receipt Date: 20130501
  Transmission Date: 20140414
  Serious: Yes (Death, Hospitalization)
  Sender: FDA-Public Use
  Company Number: US-ABBOTT-13P-163-1067533-00

PATIENT
  Age: 70 Year
  Sex: Male
  Weight: 82.63 kg

DRUGS (2)
  1. LUPRON DEPOT [Suspect]
     Indication: PROSTATE CANCER METASTATIC
     Route: 030
     Dates: start: 200701, end: 201209
  2. TAXOTERE [Concomitant]
     Indication: PRODUCT USED FOR UNKNOWN INDICATION
     Dosage: 75 MG/M2 EVERY 3 WEEKS
     Route: 042
     Dates: start: 20120227, end: 20120501

REACTIONS (4)
  - Prostate cancer metastatic [Fatal]
  - Asthenia [Fatal]
  - Failure to thrive [Fatal]
  - Sepsis [Fatal]
